FAERS Safety Report 9576526 (Version 2)
Quarter: 2013Q4

REPORT INFORMATION
  Report Type: Spontaneous
  Country: US (occurrence: US)
  Receive Date: 20131001
  Receipt Date: 20131202
  Transmission Date: 20140711
  Serious: No
  Sender: FDA-Public Use
  Company Number: US-AMGEN-USASP2013003046

PATIENT
  Age: 33 Year
  Sex: Female
  Weight: 79.37 kg

DRUGS (10)
  1. ENBREL [Suspect]
     Indication: RHEUMATOID ARTHRITIS
     Dosage: 50 MG, QWK
     Route: 058
     Dates: start: 20121201
  2. SINGULAIR [Concomitant]
     Dosage: 10 MG, UNK
  3. FLEXERIL                           /00428402/ [Concomitant]
     Dosage: 10 MG, UNK
  4. NASONEX [Concomitant]
     Dosage: 50 MUG, UNK
  5. NEXIUM                             /01479302/ [Concomitant]
     Dosage: 40 MG, UNK
  6. MOBIC [Concomitant]
     Dosage: 15 MG, UNK
  7. YAZ [Concomitant]
     Dosage: UNK, 3-0.02MG
  8. PROBIOTIC                          /06395501/ [Concomitant]
     Dosage: UNK
  9. MULTIVITAMINS, PLAIN [Concomitant]
     Dosage: UNK
  10. VALACICLOVIR [Concomitant]
     Dosage: 500 MG, UNK

REACTIONS (1)
  - Injection site pain [Not Recovered/Not Resolved]
